FAERS Safety Report 17212852 (Version 1)
Quarter: 2019Q4

REPORT INFORMATION
  Report Type: Spontaneous
  Country: US (occurrence: US)
  Receive Date: 20191230
  Receipt Date: 20191230
  Transmission Date: 20200122
  Serious: Yes (Other)
  Sender: FDA-Public Use
  Company Number: US-ALKEM LABORATORIES LIMITED-US-ALKEM-2019-05414

PATIENT
  Age: 15 Year
  Sex: Female

DRUGS (16)
  1. LINEZOLID. [Concomitant]
     Active Substance: LINEZOLID
     Indication: ANTIBIOTIC THERAPY
     Dosage: UNK
     Route: 048
  2. CLARITHROMYCIN. [Concomitant]
     Active Substance: CLARITHROMYCIN
     Dosage: UNK
     Route: 042
  3. MOXIFLOXACIN. [Concomitant]
     Active Substance: MOXIFLOXACIN
     Indication: ANTIBIOTIC THERAPY
     Dosage: UNK
     Route: 065
  4. BEDAQUIINE [Concomitant]
     Indication: ANTIBIOTIC THERAPY
     Dosage: UNK
     Route: 065
  5. AMIKACIN. [Concomitant]
     Active Substance: AMIKACIN
     Indication: ANTIBIOTIC THERAPY
     Dosage: UNK
     Route: 042
  6. ACICLOVIR [Suspect]
     Active Substance: ACYCLOVIR
     Indication: PROPHYLAXIS
     Dosage: UNK
     Route: 048
  7. CLARITHROMYCIN. [Concomitant]
     Active Substance: CLARITHROMYCIN
     Indication: ANTIBIOTIC THERAPY
     Dosage: UNK
     Route: 048
  8. POSACONAZOLE [Concomitant]
     Active Substance: POSACONAZOLE
     Indication: ANTIBIOTIC THERAPY
     Dosage: UNK
     Route: 065
  9. LINEZOLID. [Concomitant]
     Active Substance: LINEZOLID
     Dosage: UNK
     Route: 042
  10. MYCOPHENOLATE MOFETIL. [Suspect]
     Active Substance: MYCOPHENOLATE MOFETIL
     Indication: IMMUNOSUPPRESSANT DRUG THERAPY
     Dosage: UNK
     Route: 048
  11. TACROLIMUS. [Suspect]
     Active Substance: TACROLIMUS
     Indication: IMMUNOSUPPRESSANT DRUG THERAPY
     Dosage: UNK
     Route: 048
  12. COTRIMOXAZOLE [Concomitant]
     Active Substance: SULFAMETHOXAZOLE\TRIMETHOPRIM
     Indication: ANTIBIOTIC THERAPY
     Dosage: UNK
     Route: 065
  13. LIPOSOMAL AMPHOTERICIN [Concomitant]
     Active Substance: AMPHOTERICIN B
     Indication: ANTIBIOTIC THERAPY
     Dosage: UNK
     Route: 065
  14. ITRACONAZOLE. [Concomitant]
     Active Substance: ITRACONAZOLE
     Indication: ANTIBIOTIC THERAPY
     Dosage: UNK
     Route: 048
  15. IMIPENEM AND CILASTATIN [Concomitant]
     Active Substance: CILASTATIN SODIUM\IMIPENEM
     Indication: ANTIBIOTIC THERAPY
     Dosage: UNK
     Route: 042
  16. TIGECYCLINE. [Concomitant]
     Active Substance: TIGECYCLINE
     Indication: ANTIBIOTIC THERAPY
     Dosage: UNK
     Route: 042

REACTIONS (2)
  - Epstein-Barr viraemia [Unknown]
  - Drug ineffective [Unknown]
